FAERS Safety Report 5167022-7 (Version None)
Quarter: 2006Q4

REPORT INFORMATION
  Report Type: 
  Country: None (occurrence: None)
  Receive Date: 20061207
  Receipt Date: 20061114
  Transmission Date: 20070319
  Serious: Yes (Other)
  Sender: FDA-Public Use
  Company Number: 2006SE06109

PATIENT
  Age: 25394 Day
  Sex: Male

DRUGS (3)
  1. BLOPRESS TABLETS 4 [Suspect]
     Indication: HYPERTENSION
     Route: 048
     Dates: start: 20060808, end: 20060911
  2. ALLOPURINOL [Concomitant]
     Route: 048
     Dates: start: 20060801, end: 20060901
  3. ALLOPURINOL [Concomitant]
     Route: 048
     Dates: start: 20060901, end: 20060901

REACTIONS (8)
  - BLOOD PRESSURE SYSTOLIC INCREASED [None]
  - CARDIOMEGALY [None]
  - COUGH [None]
  - DYSPNOEA [None]
  - FLUSHING [None]
  - INTERSTITIAL LUNG DISEASE [None]
  - MYOCARDIAL ISCHAEMIA [None]
  - REFUSAL OF TREATMENT BY PATIENT [None]
